FAERS Safety Report 15207034 (Version 1)
Quarter: 2018Q3

REPORT INFORMATION
  Report Type: Spontaneous
  Country: US (occurrence: US)
  Receive Date: 20180628
  Receipt Date: 20180628
  Transmission Date: 20181010
  Serious: No
  Sender: FDA-Public Use
  Company Number: None

PATIENT
  Age: 61 Year
  Sex: Female

DRUGS (1)
  1. LEVOTHYROXINE. [Suspect]
     Active Substance: LEVOTHYROXINE
     Indication: HYPOTHYROIDISM

REACTIONS (6)
  - Anxiety [None]
  - Product quality issue [None]
  - Nausea [None]
  - Malaise [None]
  - Blood thyroid stimulating hormone decreased [None]
  - Hyperhidrosis [None]

NARRATIVE: CASE EVENT DATE: 20180101
